FAERS Safety Report 11715779 (Version 2)
Quarter: 2015Q4

REPORT INFORMATION
  Report Type: Spontaneous
  Country: JP (occurrence: JP)
  Receive Date: 20151109
  Receipt Date: 20151220
  Transmission Date: 20160304
  Serious: Yes (Hospitalization, Other)
  Sender: FDA-Public Use
  Company Number: JP-UCBSA-2015033727

PATIENT
  Age: 78 Year
  Sex: Female
  Weight: 43 kg

DRUGS (7)
  1. ALEVIATIN [Concomitant]
     Active Substance: PHENYTOIN SODIUM
     Dosage: DAILY DOSE: 300 MG
     Route: 048
  2. KEPPRA [Suspect]
     Active Substance: LEVETIRACETAM
     Indication: PRODUCT USED FOR UNKNOWN INDICATION
     Dosage: UNK
     Route: 048
     Dates: start: 20150910, end: 2015
  3. KEPPRA [Suspect]
     Active Substance: LEVETIRACETAM
     Dosage: DAILY DOSE: 2000 MG
     Route: 048
     Dates: start: 201510, end: 20151018
  4. KEPPRA [Suspect]
     Active Substance: LEVETIRACETAM
     Dosage: DAILY DOSE: 3000 MG
     Route: 048
     Dates: start: 2015, end: 201510
  5. KEPPRA [Suspect]
     Active Substance: LEVETIRACETAM
     Dosage: DAILY DOSE: 1000 MG
     Route: 048
     Dates: start: 20151019, end: 20151022
  6. LEVOFLOXACIN. [Concomitant]
     Active Substance: LEVOFLOXACIN
     Indication: PYREXIA
     Dosage: UNK
     Dates: start: 2015
  7. ALEVIATIN [Concomitant]
     Active Substance: PHENYTOIN SODIUM
     Indication: PRODUCT USED FOR UNKNOWN INDICATION
     Dosage: DAILY DOSE: 200 MG
     Route: 048

REACTIONS (3)
  - Putamen haemorrhage [Not Recovered/Not Resolved]
  - Pyrexia [Recovered/Resolved]
  - Gamma-glutamyltransferase increased [Recovering/Resolving]

NARRATIVE: CASE EVENT DATE: 2015
